FAERS Safety Report 5769737-6 (Version None)
Quarter: 2008Q2

REPORT INFORMATION
  Report Type: 
  Country: None (occurrence: None)
  Receive Date: 20080612
  Receipt Date: 20080408
  Transmission Date: 20081010
  Serious: No
  Sender: FDA-Public Use
  Company Number: US-ABBOTT-08P-163-0446329-00

PATIENT
  Sex: Male
  Weight: 88.53 kg

DRUGS (5)
  1. HUMIRA [Suspect]
     Indication: CROHN'S DISEASE
     Dosage: 160 MG
     Route: 058
     Dates: start: 20080403
  2. HUMIRA [Suspect]
     Dosage: 80 MG
     Route: 058
  3. HUMIRA [Suspect]
     Route: 058
  4. AZATHIOPRINE [Concomitant]
     Indication: CROHN'S DISEASE
     Dosage: 50 MG TWICE DAILY
     Route: 048
     Dates: start: 20070601
  5. MESALAMINE [Concomitant]
     Indication: CROHN'S DISEASE
     Dosage: 1000 MG FOUR TIMES DAILY
     Dates: start: 20070301

REACTIONS (1)
  - ACCIDENTAL EXPOSURE [None]
